FAERS Safety Report 5674519-X (Version None)
Quarter: 2008Q2

REPORT INFORMATION
  Report Type: 
  Country: None (occurrence: None)
  Receive Date: 20080303
  Receipt Date: 20070316
  Transmission Date: 20081010
  Serious: Yes (Other)
  Sender: FDA-Public Use
  Company Number: MK-6031369

PATIENT
  Age: 15 Year
  Sex: Male
  Weight: 90.8 kg

DRUGS (2)
  1. AMNESTEEM [Suspect]
     Indication: ACNE
     Dosage: 40 MG;DAILY;ORAL ; 80 MG;DAILY;ORAL
     Route: 048
     Dates: start: 20060815, end: 20060901
  2. AMNESTEEM [Suspect]
     Indication: ACNE
     Dosage: 40 MG;DAILY;ORAL ; 80 MG;DAILY;ORAL
     Route: 048
     Dates: start: 20060901, end: 20061103

REACTIONS (2)
  - BLOOD TRIGLYCERIDES INCREASED [None]
  - DEPRESSION [None]
